FAERS Safety Report 15134206 (Version 1)
Quarter: 2018Q3

REPORT INFORMATION
  Report Type: Spontaneous
  Country: GB (occurrence: GB)
  Receive Date: 20180712
  Receipt Date: 20180712
  Transmission Date: 20181010
  Serious: Yes (Hospitalization)
  Sender: FDA-Public Use
  Company Number: GB-AUROBINDO-AUR-APL-2018-034525

PATIENT
  Age: 78 Year
  Sex: Female

DRUGS (7)
  1. SERTRALINE [Suspect]
     Active Substance: SERTRALINE HYDROCHLORIDE
     Indication: PRODUCT USED FOR UNKNOWN INDICATION
     Dosage: 50 MILLIGRAM, ONCE A DAY IN THE MORNING
     Route: 048
     Dates: end: 20180521
  2. LOSARTAN FILM?COATED TABLETS [Suspect]
     Active Substance: LOSARTAN
     Indication: HYPERTENSION
     Dosage: 50 MILLIGRAM, ONCE A DAY IN THE MORNING
     Route: 048
     Dates: end: 20180523
  3. OMEPRAZOLE. [Suspect]
     Active Substance: OMEPRAZOLE
     Indication: PRODUCT USED FOR UNKNOWN INDICATION
     Dosage: 40 MILLIGRAM, ONCE A DAY
     Route: 048
     Dates: end: 20180523
  4. AMITRIPTYLINE [Suspect]
     Active Substance: AMITRIPTYLINE
     Indication: PRODUCT USED FOR UNKNOWN INDICATION
     Dosage: 10 MILLIGRAM, ONCE A DAY AT NIGHT. STARTED 5 WEEKS AGO AND TITRATED FROM 10MG AT NIGHT TO 30MG AT NI
     Route: 048
     Dates: start: 20180418, end: 20180502
  5. AMITRIPTYLINE [Suspect]
     Active Substance: AMITRIPTYLINE
     Dosage: 30 MILLIGRAM, ONCE A DAY AT NIGHT. STARTED 5 WEEKS AGO AND TITRATED FROM 10MG AT NIGHT TO 30MG AT NI
     Route: 048
     Dates: start: 20180516, end: 20180523
  6. HYDROXOCOBALAMIN [Concomitant]
     Active Substance: HYDROXOCOBALAMIN
     Indication: PRODUCT USED FOR UNKNOWN INDICATION
     Dosage: 1MG/1ML
     Route: 065
  7. AMITRIPTYLINE [Suspect]
     Active Substance: AMITRIPTYLINE
     Dosage: 20 MILLIGRAM, ONCE A DAY AT NIGHT. STARTED 5 WEEKS AGO AND TITRATED FROM 10MG AT NIGHT TO 30MG AT NI
     Route: 048
     Dates: start: 20180502, end: 20180516

REACTIONS (3)
  - Hyponatraemia [Recovered/Resolved]
  - Dry mouth [Recovered/Resolved]
  - Confusional state [Unknown]

NARRATIVE: CASE EVENT DATE: 20180522
